FAERS Safety Report 15997962 (Version 1)
Quarter: 2019Q1

REPORT INFORMATION
  Report Type: Spontaneous
  Country: DE (occurrence: DE)
  Receive Date: 20190222
  Receipt Date: 20190222
  Transmission Date: 20190418
  Serious: Yes (Life-Threatening)
  Sender: FDA-Public Use
  Company Number: DE-SEATTLE GENETICS-2019SGN00372

PATIENT
  Age: 64 Year
  Sex: Female
  Weight: 69 kg

DRUGS (4)
  1. CLEMASTINE [Concomitant]
     Active Substance: CLEMASTINE
     Indication: PREMEDICATION
     Dosage: 2 MILLIGRAM, UNK
     Dates: start: 20181228, end: 20190201
  2. METOPROLOL. [Concomitant]
     Active Substance: METOPROLOL
     Dosage: 47.5 MILLIGRAM, UNK
  3. ADCETRIS [Suspect]
     Active Substance: BRENTUXIMAB VEDOTIN
     Indication: HODGKIN^S DISEASE
     Dosage: 1.8 MILLIGRAM/KILOGRAM, UNK
     Route: 065
     Dates: start: 20181228, end: 20190201
  4. PARACETAMOL [Concomitant]
     Active Substance: ACETAMINOPHEN
     Indication: PREMEDICATION
     Dosage: 1 GRAM, UNK
     Dates: start: 20181228, end: 20190201

REACTIONS (5)
  - Hypersensitivity [Recovered/Resolved with Sequelae]
  - Blood pressure decreased [Recovered/Resolved]
  - Oxygen saturation decreased [Recovered/Resolved]
  - Nausea [Recovered/Resolved]
  - Erythema [Recovered/Resolved]

NARRATIVE: CASE EVENT DATE: 20190201
